FAERS Safety Report 13782671 (Version 1)
Quarter: 2017Q3

REPORT INFORMATION
  Report Type: Spontaneous
  Country: US (occurrence: US)
  Receive Date: 20170724
  Receipt Date: 20170724
  Transmission Date: 20171127
  Serious: Yes (Other)
  Sender: FDA-Public Use
  Company Number: US-PFIZER INC-2017319719

PATIENT
  Age: 30 Year
  Sex: Male

DRUGS (2)
  1. BUPRENORPHINE. [Suspect]
     Active Substance: BUPRENORPHINE
     Indication: DRUG ABUSE
     Dosage: UNK
  2. LOPERAMIDE [Concomitant]
     Active Substance: LOPERAMIDE
     Dosage: 400 MG, DAILY

REACTIONS (2)
  - Ventricular tachycardia [Unknown]
  - Drug withdrawal syndrome [Unknown]
